FAERS Safety Report 21707763 (Version 1)
Quarter: 2022Q4

REPORT INFORMATION
  Report Type: Spontaneous
  Country: AR (occurrence: AR)
  Receive Date: 20221209
  Receipt Date: 20221209
  Transmission Date: 20230113
  Serious: Yes (Other)
  Sender: FDA-Public Use
  Company Number: AR-BAYER-2022A166113

PATIENT
  Age: 56 Year
  Sex: Female

DRUGS (3)
  1. NAPROXEN SODIUM [Suspect]
     Active Substance: NAPROXEN SODIUM
     Dosage: UNK
  2. ACTRON [IBUPROFEN] [Concomitant]
  3. DIURETIC [JUNIPERUS COMMUNIS] [Concomitant]

REACTIONS (4)
  - Swelling [Unknown]
  - Blood pressure increased [Unknown]
  - Pain [None]
  - Abdominal discomfort [None]
